FAERS Safety Report 9810027 (Version 2)
Quarter: 2015Q4

REPORT INFORMATION
  Report Type: Spontaneous
  Country: US (occurrence: US)
  Receive Date: 20140110
  Receipt Date: 20151228
  Transmission Date: 20160305
  Serious: Yes (Other)
  Sender: FDA-Public Use
  Company Number: US-SANOFI-AVENTIS-2013SA068353

PATIENT
  Age: 64 Year
  Sex: Male

DRUGS (2)
  1. PLAVIX [Suspect]
     Active Substance: CLOPIDOGREL BISULFATE
     Indication: STENT PLACEMENT
     Route: 065
     Dates: start: 200901, end: 201101
  2. PLAVIX [Suspect]
     Active Substance: CLOPIDOGREL BISULFATE
     Indication: TRANSIENT ISCHAEMIC ATTACK
     Route: 065
     Dates: start: 200901, end: 201101

REACTIONS (7)
  - Post-traumatic stress disorder [Unknown]
  - Nervous system disorder [Unknown]
  - Visual impairment [Unknown]
  - Cerebrovascular accident [Unknown]
  - Condition aggravated [Unknown]
  - Balance disorder [Unknown]
  - Back disorder [Unknown]

NARRATIVE: CASE EVENT DATE: 201109
